FAERS Safety Report 5630718-4 (Version None)
Quarter: 2008Q1

REPORT INFORMATION
  Report Type: 
  Country: None (occurrence: None)
  Receive Date: 20080219
  Receipt Date: 20080211
  Transmission Date: 20080703
  Serious: Yes (Hospitalization)
  Sender: FDA-Public Use
  Company Number: DK-JNJFOC-20080201958

PATIENT
  Sex: Female
  Weight: 56 kg

DRUGS (1)
  1. PEVARYL [Suspect]
     Indication: VULVOVAGINAL MYCOTIC INFECTION
     Route: 067

REACTIONS (8)
  - CSF PROTEIN INCREASED [None]
  - CSF WHITE BLOOD CELL COUNT POSITIVE [None]
  - MONONEURITIS [None]
  - PARAESTHESIA [None]
  - PERIPHERAL COLDNESS [None]
  - RASH [None]
  - SENSORY LOSS [None]
  - THROMBOCYTHAEMIA [None]
